FAERS Safety Report 8574684-0 (Version None)
Quarter: 2012Q3

REPORT INFORMATION
  Report Type: 
  Country: None (occurrence: None)
  Receive Date: 20120807
  Receipt Date: 20120730
  Transmission Date: 20120928
  Serious: Yes (Hospitalization)
  Sender: FDA-Public Use
  Company Number: US-BIOGENIDEC-2011BI036201

PATIENT
  Age: 52 Year
  Sex: Female

DRUGS (1)
  1. AVONEX [Suspect]
     Indication: MULTIPLE SCLEROSIS
     Route: 030
     Dates: start: 20070927

REACTIONS (7)
  - KNEE ARTHROPLASTY [None]
  - DEVICE RELATED INFECTION [None]
  - ARTHRITIS INFECTIVE [None]
  - ARTHRALGIA [None]
  - JOINT IRRIGATION [None]
  - DYSPNOEA [None]
  - THROMBOSIS [None]
